FAERS Safety Report 23303423 (Version 2)
Quarter: 2024Q1

REPORT INFORMATION
  Report Type: Spontaneous
  Country: CL (occurrence: CL)
  Receive Date: 20231215
  Receipt Date: 20240104
  Transmission Date: 20240410
  Serious: Yes (Hospitalization, Other)
  Sender: FDA-Public Use
  Company Number: CL-PFIZER INC-PV202300153582

PATIENT
  Age: 33 Year
  Sex: Female

DRUGS (3)
  1. NURTEC ODT [Suspect]
     Active Substance: RIMEGEPANT SULFATE
     Indication: Migraine prophylaxis
     Dosage: 75 MG, EVERY OTHER DAY
     Dates: start: 20230817, end: 20231018
  2. NURTEC ODT [Suspect]
     Active Substance: RIMEGEPANT SULFATE
     Indication: Migraine with aura
  3. KEVAL [ELETRIPTAN HYDROBROMIDE] [Concomitant]
     Dosage: UNK
     Dates: start: 20230927

REACTIONS (3)
  - Cerebrovascular accident [Recovered/Resolved]
  - Drug ineffective [Unknown]
  - Visual impairment [Unknown]

NARRATIVE: CASE EVENT DATE: 20231004
